FAERS Safety Report 19921096 (Version 1)
Quarter: 2021Q4

REPORT INFORMATION
  Report Type: Spontaneous
  Country: FR (occurrence: FR)
  Receive Date: 20211005
  Receipt Date: 20211005
  Transmission Date: 20220303
  Serious: Yes (Hospitalization, Disabling, Other)
  Sender: FDA-Public Use
  Company Number: FR-SA-SAC20210512001218

PATIENT
  Age: 73 Year
  Sex: Male
  Weight: 85 kg

DRUGS (5)
  1. PREDNISONE [Suspect]
     Active Substance: PREDNISONE
     Indication: Inflammation
     Dosage: 15 MILLIGRAM
     Route: 048
     Dates: start: 20210419, end: 20210428
  2. PREDNISONE [Suspect]
     Active Substance: PREDNISONE
     Indication: Rheumatoid arthritis
  3. KEVZARA [Suspect]
     Active Substance: SARILUMAB
     Indication: Rheumatoid arthritis
     Dosage: 150 MILLIGRAM
     Route: 058
     Dates: start: 20210426, end: 20210426
  4. OLUMIANT [Concomitant]
     Active Substance: BARICITINIB
     Dosage: UNK
     Dates: end: 2021
  5. MODERNA COVID-19 VACCINE [Concomitant]
     Active Substance: CX-024414
     Indication: COVID-19 immunisation
     Dosage: UNK

REACTIONS (6)
  - Neutropenia [Recovered/Resolved]
  - Impaired work ability [Unknown]
  - Mobility decreased [Unknown]
  - Noninfective gingivitis [Recovered/Resolved]
  - Lymphopenia [Recovered/Resolved]
  - Incorrect dose administered [Unknown]

NARRATIVE: CASE EVENT DATE: 20210101
